FAERS Safety Report 13561371 (Version 2)
Quarter: 2017Q2

REPORT INFORMATION
  Report Type: Report from Study
  Country: MX (occurrence: MX)
  Receive Date: 20170518
  Receipt Date: 20170522
  Transmission Date: 20170830
  Serious: Yes (Death, Other)
  Sender: FDA-Public Use
  Company Number: PHHY2017MX073086

PATIENT
  Sex: Female

DRUGS (3)
  1. NOVOTIRAL [Concomitant]
     Active Substance: LEVOTHYROXINE
     Indication: THYROID DISORDER
     Route: 065
  2. EXFORGE HCT [Suspect]
     Active Substance: AMLODIPINE BESYLATE\HYDROCHLOROTHIAZIDE\VALSARTAN
     Indication: HYPERTENSION
     Dosage: 1 DF (5MG AMLODIPINE /12.5MG HYDROCHLOROTHIAZIDE/160MG VALSARTAN), QD (IN THE MORNI NG)
     Route: 065
     Dates: end: 20170406
  3. DIOVAN [Suspect]
     Active Substance: VALSARTAN
     Indication: PRODUCT USED FOR UNKNOWN INDICATION
     Dosage: 1 DF, QD (AT NIGHT)
     Route: 065

REACTIONS (3)
  - Depression [Fatal]
  - Diabetic nephropathy [Unknown]
  - Eating disorder [Fatal]
